FAERS Safety Report 16042902 (Version 2)
Quarter: 2019Q2

REPORT INFORMATION
  Report Type: Spontaneous
  Country: DE (occurrence: DE)
  Receive Date: 20190306
  Receipt Date: 20190411
  Transmission Date: 20190711
  Serious: Yes (Other)
  Sender: FDA-Public Use
  Company Number: DE-MYLANLABS-2019M1019736

PATIENT
  Age: 18 Year
  Sex: Female
  Weight: 57 kg

DRUGS (1)
  1. AMITRIPTYLINE [Suspect]
     Active Substance: AMITRIPTYLINE
     Indication: PRODUCT USED FOR UNKNOWN INDICATION
     Dosage: 50MG
     Route: 048
     Dates: start: 20180611

REACTIONS (4)
  - Vision blurred [Unknown]
  - Mydriasis [Unknown]
  - Sunburn [Recovering/Resolving]
  - Optic discs blurred [Unknown]

NARRATIVE: CASE EVENT DATE: 20180625
